FAERS Safety Report 16991682 (Version 2)
Quarter: 2020Q1

REPORT INFORMATION
  Report Type: Report from Study
  Country: None (occurrence: US)
  Receive Date: 20191104
  Receipt Date: 20200106
  Transmission Date: 20200409
  Serious: Yes (Other)
  Sender: FDA-Public Use
  Company Number: US-ABBVIE-19K-163-2981077-00

PATIENT
  Sex: Female
  Weight: 96.25 kg

DRUGS (4)
  1. HUMIRA [Suspect]
     Active Substance: ADALIMUMAB
     Dosage: ABOUT 3 YEARS AGO
     Route: 058
     Dates: start: 2016, end: 2019
  2. HUMIRA [Suspect]
     Active Substance: ADALIMUMAB
     Indication: RHEUMATOID ARTHRITIS
     Route: 058
     Dates: start: 2019
  3. HUMIRA [Suspect]
     Active Substance: ADALIMUMAB
     Indication: RHEUMATOID ARTHRITIS
     Dosage: ABOUT 7-10 YEARS AGO AND STOP DATE ABOUT 5 YEARS AGO
     Route: 058
     Dates: start: 2009, end: 2014
  4. HUMIRA [Suspect]
     Active Substance: ADALIMUMAB
     Dosage: ABOUT 5 YEARS AGO AND STOP DATE ABOUT 3 YEARS AGO
     Route: 058
     Dates: start: 2014, end: 2016

REACTIONS (7)
  - Pain in extremity [Recovering/Resolving]
  - Synovial cyst [Recovering/Resolving]
  - Osteoarthritis [Recovering/Resolving]
  - Injection site swelling [Recovered/Resolved]
  - Gait disturbance [Recovering/Resolving]
  - Back pain [Recovering/Resolving]
  - Arthralgia [Recovering/Resolving]

NARRATIVE: CASE EVENT DATE: 2016
